FAERS Safety Report 10240161 (Version 1)
Quarter: 2014Q2

REPORT INFORMATION
  Report Type: Spontaneous
  Country: FR (occurrence: FR)
  Receive Date: 20140617
  Receipt Date: 20140617
  Transmission Date: 20141212
  Serious: Yes (Life-Threatening)
  Sender: FDA-Public Use
  Company Number: FR-UCBSA-2014001186

PATIENT
  Age: 56 Year
  Sex: Female

DRUGS (2)
  1. KEPPRA [Suspect]
     Dosage: 500 MG, 2X/DAY (BID)
     Route: 048
  2. TEMOZOLOMIDE [Suspect]
     Indication: GLIOBLASTOMA
     Dosage: 130 MG, ONCE DAILY (QD)
     Route: 048
     Dates: start: 20140407, end: 20140518

REACTIONS (1)
  - Thrombocytopenia [Not Recovered/Not Resolved]
